FAERS Safety Report 8964882 (Version 2)
Quarter: 2012Q4

REPORT INFORMATION
  Report Type: 
  Country: CH (occurrence: CH)
  Receive Date: 20121214
  Receipt Date: 20121224
  Transmission Date: 20130627
  Serious: Yes (Disabling, Other)
  Sender: FDA-Public Use
  Company Number: CH-ROCHE-1168624

PATIENT
  Age: 84 Year
  Sex: Female

DRUGS (2)
  1. LUCENTIS [Suspect]
     Indication: AGE-RELATED MACULAR DEGENERATION
     Route: 050
     Dates: start: 20121127
  2. FLOXAL [Concomitant]

REACTIONS (2)
  - Retinal pigment epithelial tear [Not Recovered/Not Resolved]
  - Eye haemorrhage [Unknown]
